FAERS Safety Report 7158333-4 (Version None)
Quarter: 2010Q4

REPORT INFORMATION
  Report Type: 
  Country: None (occurrence: None)
  Receive Date: 20101214
  Receipt Date: 20091211
  Transmission Date: 20110411
  Serious: No
  Sender: FDA-Public Use
  Company Number: US-PFIZER INC-2009310737

PATIENT
  Sex: Female
  Weight: 45.359 kg

DRUGS (2)
  1. ARTHROTEC [Suspect]
     Indication: NECK PAIN
     Dosage: 75 MG, 2X/DAY
     Dates: start: 20091210
  2. ARTHROTEC [Suspect]
     Indication: BACK PAIN

REACTIONS (1)
  - ABDOMINAL DISCOMFORT [None]
